FAERS Safety Report 4308439-X (Version None)
Quarter: 2004Q1

REPORT INFORMATION
  Report Type: 
  Country: None (occurrence: None)
  Receive Date: 20040226
  Receipt Date: 20031222
  Transmission Date: 20041129
  Serious: Yes (Disabling)
  Sender: FDA-Public Use
  Company Number: 2003191438US

PATIENT
  Sex: Male

DRUGS (2)
  1. CELEBREX [Suspect]
  2. WARFARIN SODIUM [Concomitant]

REACTIONS (1)
  - PAIN [None]
